FAERS Safety Report 25558927 (Version 3)
Quarter: 2025Q3

REPORT INFORMATION
  Report Type: Spontaneous
  Country: US (occurrence: US)
  Receive Date: 20250715
  Receipt Date: 20250718
  Transmission Date: 20251021
  Serious: No
  Sender: NOVO NORDISK
  Company Number: US-NOVOPROD-1442496

PATIENT
  Age: 40 Year
  Sex: Male
  Weight: 95.238 kg

DRUGS (6)
  1. WEGOVY [Suspect]
     Active Substance: SEMAGLUTIDE
     Indication: Obesity
  2. OZEMPIC [Suspect]
     Active Substance: SEMAGLUTIDE
     Indication: Obesity
  3. RYBELSUS [Suspect]
     Active Substance: SEMAGLUTIDE
     Indication: Obesity
  4. SAXENDA [Suspect]
     Active Substance: LIRAGLUTIDE
     Indication: Obesity
  5. VICTOZA [Suspect]
     Active Substance: LIRAGLUTIDE
     Indication: Obesity
  6. MOUNJARO [Concomitant]
     Active Substance: TIRZEPATIDE
     Indication: Obesity

REACTIONS (1)
  - Adverse drug reaction [Unknown]
